FAERS Safety Report 8329566-6 (Version None)
Quarter: 2012Q2

REPORT INFORMATION
  Report Type: 
  Country: None (occurrence: None)
  Receive Date: 20120502
  Receipt Date: 20090820
  Transmission Date: 20120825
  Serious: No
  Sender: FDA-Public Use
  Company Number: US-TEVA-2009009873

PATIENT
  Sex: Female
  Weight: 61.29 kg

DRUGS (5)
  1. SYNTHROID [Concomitant]
  2. ASPIRIN [Concomitant]
  3. MULTIVITAMIN AND MINERAL SUPPLEMENTS [Concomitant]
  4. NUVIGIL [Suspect]
     Indication: NARCOLEPSY
     Dosage: 150 MILLIGRAM;
     Route: 048
     Dates: start: 20090815
  5. LIPITOR [Concomitant]

REACTIONS (1)
  - DRY MOUTH [None]
